FAERS Safety Report 9605550 (Version 3)
Quarter: 2013Q4

REPORT INFORMATION
  Report Type: Spontaneous
  Country: US (occurrence: US)
  Receive Date: 20131008
  Receipt Date: 20131112
  Transmission Date: 20140711
  Serious: No
  Sender: FDA-Public Use
  Company Number: US-PFIZER INC-2013286694

PATIENT
  Age: 70 Year
  Sex: Female
  Weight: 73.02 kg

DRUGS (2)
  1. RELPAX [Suspect]
     Indication: MIGRAINE
     Dosage: 40 MG, AS NEEDED
     Route: 048
     Dates: start: 2013
  2. FUROSEMIDE [Concomitant]
     Indication: FLUID RETENTION
     Dosage: 40 MG, DAILY

REACTIONS (2)
  - Drug ineffective [Unknown]
  - Fall [Unknown]
